FAERS Safety Report 8106425-5 (Version None)
Quarter: 2012Q1

REPORT INFORMATION
  Report Type: 
  Country: None (occurrence: None)
  Receive Date: 20120130
  Receipt Date: 20120116
  Transmission Date: 20120608
  Serious: Yes (Other)
  Sender: FDA-Public Use
  Company Number: DSJ-2012-00964

PATIENT
  Age: 5 Decade
  Sex: Male

DRUGS (3)
  1. BENICAR [Suspect]
     Indication: HYPERTENSION
     Dosage: 40 MG (20 MG, 2 IN 1 D), PER ORAL
     Route: 048
     Dates: start: 20111001, end: 20111101
  2. METOPROLOL TARTRATE [Suspect]
     Indication: HYPERTENSION
     Dosage: 50 MG, PER ORAL
     Route: 048
     Dates: start: 20111001
  3. ATORVASTATIN [Concomitant]

REACTIONS (2)
  - ASTHENIA [None]
  - HYPOTENSION [None]
